FAERS Safety Report 24072014 (Version 1)
Quarter: 2024Q3

REPORT INFORMATION
  Report Type: Spontaneous
  Country: CN (occurrence: CN)
  Receive Date: 20240710
  Receipt Date: 20240710
  Transmission Date: 20241017
  Serious: Yes (Hospitalization, Other)
  Sender: IPCA
  Company Number: CN-IPCA LABORATORIES LIMITED-IPC-2024-CN-001676

PATIENT

DRUGS (17)
  1. WARFARIN [Interacting]
     Active Substance: WARFARIN
     Indication: Atrial fibrillation
     Dosage: 2.5 MILLIGRAM
     Route: 048
  2. WARFARIN [Interacting]
     Active Substance: WARFARIN
     Dosage: 5 MILLIGRAM, QD
     Route: 065
     Dates: start: 20230101
  3. WARFARIN [Interacting]
     Active Substance: WARFARIN
     Dosage: 2.5 MILLIGRAM, QD
     Route: 048
  4. WARFARIN [Interacting]
     Active Substance: WARFARIN
     Dosage: 3.75 MILLIGRAM, QD
     Route: 048
  5. WARFARIN [Interacting]
     Active Substance: WARFARIN
     Dosage: 2.5 MILLIGRAM, QD
     Route: 048
  6. WARFARIN [Interacting]
     Active Substance: WARFARIN
     Dosage: 3 MILLIGRAM, QD
     Route: 048
  7. AMIODARONE [Interacting]
     Active Substance: AMIODARONE
     Indication: Atrial fibrillation
     Dosage: 300 MG  AMIODARONE IN 50 ML OF 5% GLUCOSE SOLUTION AT 30  MG/H.
     Route: 042
  8. AMIODARONE [Interacting]
     Active Substance: AMIODARONE
     Dosage: 150 MILLIGRAM
     Route: 042
  9. AMIODARONE [Interacting]
     Active Substance: AMIODARONE
     Dosage: 0.2 GRAM, TID
     Route: 048
  10. ROSUVASTATIN [Concomitant]
     Active Substance: ROSUVASTATIN
     Indication: Product used for unknown indication
     Dosage: 10 MILLIGRAM
     Route: 048
  11. METOPROLOL SUCCINATE [Concomitant]
     Active Substance: METOPROLOL SUCCINATE
     Indication: Product used for unknown indication
     Dosage: 47.5 MILLIGRAM, QD
     Route: 048
  12. IVABRADINE [Concomitant]
     Active Substance: IVABRADINE
     Indication: Product used for unknown indication
     Dosage: 2.5 MILLIGRAM, QD
     Route: 048
  13. SPIRONOLACTONE [Concomitant]
     Active Substance: SPIRONOLACTONE
     Indication: Product used for unknown indication
     Dosage: 20 MILLIGRAM, QD
     Route: 048
  14. SPIRONOLACTONE [Concomitant]
     Active Substance: SPIRONOLACTONE
     Dosage: 20 MILLIGRAM, QD
     Route: 048
  15. TORSEMIDE [Concomitant]
     Active Substance: TORSEMIDE
     Indication: Product used for unknown indication
     Dosage: 10 MILLIGRAM, BID
     Route: 048
  16. SACUBITRIL AND VALSARTAN TABLET [Concomitant]
     Indication: Product used for unknown indication
     Dosage: 25 MILLIGRAM, QD
     Route: 048
  17. SACUBITRIL AND VALSARTAN TABLET [Concomitant]
     Dosage: 25 MILLIGRAM, BID
     Route: 048

REACTIONS (5)
  - Nephropathy [Recovering/Resolving]
  - Acute kidney injury [Recovering/Resolving]
  - Epistaxis [Recovering/Resolving]
  - International normalised ratio increased [Recovering/Resolving]
  - Drug interaction [Unknown]

NARRATIVE: CASE EVENT DATE: 20230101
